FAERS Safety Report 8173589-7 (Version None)
Quarter: 2012Q1

REPORT INFORMATION
  Report Type: 
  Country: None (occurrence: None)
  Receive Date: 20120229
  Receipt Date: 20120227
  Transmission Date: 20120608
  Serious: Yes (Hospitalization)
  Sender: FDA-Public Use
  Company Number: US-PFIZER INC-2012051695

PATIENT
  Sex: Female
  Weight: 92.517 kg

DRUGS (7)
  1. WELLBUTRIN [Concomitant]
     Dosage: UNK
  2. CHANTIX [Suspect]
     Indication: SMOKING CESSATION THERAPY
     Dosage: 0.5 MG, 1X/DAY
     Route: 048
     Dates: start: 20100301
  3. ABILIFY [Concomitant]
     Dosage: UNK
  4. OXYGEN [Concomitant]
     Indication: DYSPNOEA
     Dosage: UNK
  5. CHANTIX [Suspect]
     Dosage: 1 MG, 2X/DAY
     Route: 048
  6. TEGRETOL [Concomitant]
     Dosage: UNK
  7. CHANTIX [Suspect]
     Dosage: 0.5 MG, 1X/DAY
     Route: 048
     Dates: start: 20120108

REACTIONS (2)
  - MALAISE [None]
  - PNEUMONIA [None]
